FAERS Safety Report 19945649 (Version 2)
Quarter: 2022Q1

REPORT INFORMATION
  Report Type: Spontaneous
  Country: US (occurrence: US)
  Receive Date: 20211012
  Receipt Date: 20220210
  Transmission Date: 20220424
  Serious: Yes (Hospitalization)
  Sender: FDA-Public Use
  Company Number: US-PFIZER INC-202101289312

PATIENT
  Age: 34 Year
  Sex: Female

DRUGS (4)
  1. HEPARIN SODIUM [Suspect]
     Active Substance: HEPARIN SODIUM
     Indication: Infective aneurysm
     Dosage: UNK, DRIP
  2. HEPARIN SODIUM [Suspect]
     Active Substance: HEPARIN SODIUM
     Indication: Pelvic abscess
  3. ENOXAPARIN [Suspect]
     Active Substance: ENOXAPARIN
     Indication: Infective aneurysm
     Dosage: UNK
  4. ENOXAPARIN [Suspect]
     Active Substance: ENOXAPARIN
     Indication: Pelvic abscess

REACTIONS (1)
  - Haematuria [Recovered/Resolved]
